FAERS Safety Report 9236659 (Version 4)
Quarter: 2013Q2

REPORT INFORMATION
  Report Type: Report from Study
  Country: CA (occurrence: CA)
  Receive Date: 20130417
  Receipt Date: 20130519
  Transmission Date: 20140414
  Serious: Yes (Other)
  Sender: FDA-Public Use
  Company Number: CA-ROCHE-1210201

PATIENT
  Age: 15 Year
  Sex: Female
  Weight: 45 kg

DRUGS (6)
  1. ACTEMRA [Suspect]
     Indication: ARTHRITIS
     Route: 042
     Dates: start: 20130326, end: 20130425
  2. METHOTREXATE [Concomitant]
     Dosage: WEEKLY
     Route: 048
  3. SULFASALAZINE [Concomitant]
     Route: 065
  4. FOLIC ACID [Concomitant]
  5. DICLOFENAC [Concomitant]
     Route: 048
  6. TYLENOL [Concomitant]

REACTIONS (6)
  - Synovial rupture [Not Recovered/Not Resolved]
  - Fibrin D dimer increased [Not Recovered/Not Resolved]
  - Hypersensitivity [Unknown]
  - Fatigue [Recovered/Resolved]
  - Pain in extremity [Not Recovered/Not Resolved]
  - Local swelling [Not Recovered/Not Resolved]
